FAERS Safety Report 25334635 (Version 1)
Quarter: 2025Q2

REPORT INFORMATION
  Report Type: Spontaneous
  Country: HU (occurrence: HU)
  Receive Date: 20250520
  Receipt Date: 20250520
  Transmission Date: 20250717
  Serious: Yes (Other)
  Sender: ROCHE
  Company Number: HU-ROCHE-10000282876

PATIENT

DRUGS (1)
  1. OCREVUS [Suspect]
     Active Substance: OCRELIZUMAB
     Indication: Multiple sclerosis
     Route: 050

REACTIONS (11)
  - Infection [Unknown]
  - Peritonsillar abscess [Unknown]
  - Urinary tract infection [Unknown]
  - Pyelonephritis [Unknown]
  - Gastrointestinal infection [Unknown]
  - Seizure [Unknown]
  - Platelet count increased [Unknown]
  - White blood cell count increased [Unknown]
  - Pneumonia [Unknown]
  - Anxiety [Unknown]
  - Syncope [Unknown]
